FAERS Safety Report 20433019 (Version 1)
Quarter: 2022Q1

REPORT INFORMATION
  Report Type: Spontaneous
  Country: US (occurrence: US)
  Receive Date: 20220205
  Receipt Date: 20220205
  Transmission Date: 20220423
  Serious: No
  Sender: FDA-Public Use
  Company Number: US-SANOFI-00891949

PATIENT
  Age: 56 Year
  Sex: Male

DRUGS (1)
  1. ADMELOG [Suspect]
     Active Substance: INSULIN LISPRO
     Indication: Diabetes mellitus
     Dosage: UNK

REACTIONS (5)
  - Blood glucose fluctuation [Unknown]
  - Blood glucose increased [Unknown]
  - Device issue [Unknown]
  - Malaise [Unknown]
  - Somnolence [Unknown]
